FAERS Safety Report 21765680 (Version 4)
Quarter: 2023Q2

REPORT INFORMATION
  Report Type: Report from Study
  Country: CO (occurrence: CO)
  Receive Date: 20221222
  Receipt Date: 20230409
  Transmission Date: 20230721
  Serious: Yes (Disabling)
  Sender: FDA-Public Use
  Company Number: CO-002147023-NVSC2022CO222376

PATIENT
  Sex: Female

DRUGS (5)
  1. KISQALI [Suspect]
     Active Substance: RIBOCICLIB
     Indication: Breast cancer metastatic
     Dosage: 600 MG, Q3W
     Route: 048
  2. KISQALI [Suspect]
     Active Substance: RIBOCICLIB
     Dosage: 600 MG, QD
     Route: 048
  3. LETROZOLE [Suspect]
     Active Substance: LETROZOLE
     Indication: Product used for unknown indication
     Dosage: UNK
     Route: 065
  4. LOSARTAN [Suspect]
     Active Substance: LOSARTAN
     Indication: Product used for unknown indication
     Dosage: UNK
     Route: 065
  5. FULVESTRANT [Suspect]
     Active Substance: FULVESTRANT
     Indication: Product used for unknown indication
     Dosage: UNK
     Route: 030

REACTIONS (23)
  - Ill-defined disorder [Unknown]
  - Influenza [Unknown]
  - Rhinorrhoea [Unknown]
  - Gait inability [Unknown]
  - Balance disorder [Unknown]
  - Mass [Unknown]
  - Fear [Unknown]
  - Renal disorder [Unknown]
  - Liver disorder [Unknown]
  - Ageusia [Unknown]
  - Salivary hypersecretion [Unknown]
  - Cyst [Unknown]
  - Gastrooesophageal reflux disease [Unknown]
  - Dyspepsia [Unknown]
  - Pain [Unknown]
  - Burn oesophageal [Unknown]
  - Buttock claudication [Unknown]
  - Pain in extremity [Unknown]
  - Cough [Unknown]
  - Nausea [Unknown]
  - Drug intolerance [Unknown]
  - Product dispensing error [Unknown]
  - Injection site pain [Unknown]
